FAERS Safety Report 4772893-X (Version None)
Quarter: 2005Q3

REPORT INFORMATION
  Report Type: 
  Country: None (occurrence: None)
  Receive Date: 20050916
  Receipt Date: 20050908
  Transmission Date: 20060218
  Serious: Yes (Hospitalization)
  Sender: FDA-Public Use
  Company Number: 2005BI016667

PATIENT
  Age: 51 Year
  Sex: Female

DRUGS (1)
  1. AVONEX [Suspect]
     Indication: MULTIPLE SCLEROSIS
     Dosage: 10 UG;QW;IM
     Route: 030
     Dates: start: 20050825, end: 20050908

REACTIONS (2)
  - CONTUSION [None]
  - REFUSAL OF TREATMENT BY PATIENT [None]
